FAERS Safety Report 7576033-3 (Version None)
Quarter: 2011Q2

REPORT INFORMATION
  Report Type: 
  Country: None (occurrence: None)
  Receive Date: 20110628
  Receipt Date: 20110518
  Transmission Date: 20111010
  Serious: No
  Sender: FDA-Public Use
  Company Number: US-BAYER-2011-044062

PATIENT
  Sex: Female

DRUGS (6)
  1. AVID [Concomitant]
  2. EXCEDRIN (MIGRAINE) [Concomitant]
  3. ALEVE (CAPLET) [Suspect]
     Indication: PAIN IN EXTREMITY
     Route: 048
  4. ALEVE (CAPLET) [Suspect]
     Indication: MIGRAINE
  5. TYLENOL-500 [Concomitant]
  6. ALEVE (CAPLET) [Suspect]
     Indication: PAIN

REACTIONS (3)
  - MIGRAINE [None]
  - PAIN IN EXTREMITY [None]
  - PAIN [None]
